FAERS Safety Report 18529409 (Version 1)
Quarter: 2020Q4

REPORT INFORMATION
  Report Type: Report from Study
  Country: None (occurrence: BG)
  Receive Date: 20201121
  Receipt Date: 20201121
  Transmission Date: 20210114
  Serious: Yes (Death, Hospitalization, Disabling, Other)
  Sender: FDA-Public Use
  Company Number: BG-ABBVIE-20K-022-3658523-00

PATIENT
  Age: 66 Year
  Sex: Male

DRUGS (3)
  1. HUMIRA [Suspect]
     Active Substance: ADALIMUMAB
     Route: 058
     Dates: start: 202001
  2. IMURAN [Concomitant]
     Active Substance: AZATHIOPRINE
     Indication: PRODUCT USED FOR UNKNOWN INDICATION
     Dates: start: 202006
  3. HUMIRA [Suspect]
     Active Substance: ADALIMUMAB
     Indication: CROHN^S DISEASE
     Route: 058
     Dates: start: 201701

REACTIONS (12)
  - Death [Fatal]
  - Peripheral ischaemia [Unknown]
  - Vascular graft thrombosis [Unknown]
  - Haemoglobin decreased [Recovered/Resolved]
  - Blood iron decreased [Recovered/Resolved]
  - Nausea [Unknown]
  - Vomiting [Recovered/Resolved]
  - Diarrhoea [Unknown]
  - Peripheral artery thrombosis [Recovered/Resolved with Sequelae]
  - Peripheral artery thrombosis [Unknown]
  - Hospitalisation [Recovered/Resolved]
  - Peripheral venous disease [Unknown]

NARRATIVE: CASE EVENT DATE: 2020
